FAERS Safety Report 5921347-3 (Version None)
Quarter: 2008Q4

REPORT INFORMATION
  Report Type: 
  Country: None (occurrence: None)
  Receive Date: 20081014
  Receipt Date: 20080929
  Transmission Date: 20090506
  Serious: Yes (Other)
  Sender: FDA-Public Use
  Company Number: BSTA2008-0033

PATIENT
  Age: 62 Year
  Sex: Female

DRUGS (4)
  1. STALEVO 100 [Suspect]
     Indication: PARKINSON'S DISEASE
     Dosage: 600 MG, ORAL; DOSEGE CHANGED FROM LEVEL III TO II, ORAL
     Route: 048
     Dates: start: 20050704, end: 20080630
  2. STALEVO 100 [Suspect]
     Indication: PARKINSON'S DISEASE
     Dosage: 600 MG, ORAL; DOSEGE CHANGED FROM LEVEL III TO II, ORAL
     Route: 048
     Dates: start: 20080701
  3. LEVOTHYROX [Concomitant]
  4. GINKOR FORT [Concomitant]

REACTIONS (5)
  - FALL [None]
  - HYPOTENSION [None]
  - LOSS OF CONSCIOUSNESS [None]
  - RIB FRACTURE [None]
  - SINUS BRADYCARDIA [None]
